FAERS Safety Report 22585182 (Version 4)
Quarter: 2023Q2

REPORT INFORMATION
  Report Type: Spontaneous
  Country: PL (occurrence: PL)
  Receive Date: 20230609
  Receipt Date: 20230626
  Transmission Date: 20230722
  Serious: Yes (Other)
  Sender: FDA-Public Use
  Company Number: PL-002147023-NVSC2023PL130821

PATIENT
  Age: 69 Year
  Sex: Female

DRUGS (1)
  1. QUETIAPINE [Suspect]
     Active Substance: QUETIAPINE
     Indication: Insomnia
     Dosage: 25 MILLIGRAM, QD (MG/24HR)
     Route: 065

REACTIONS (3)
  - Poisoning [Recovered/Resolved]
  - Persistent depressive disorder [Unknown]
  - Product use in unapproved indication [Unknown]
